FAERS Safety Report 14914251 (Version 2)
Quarter: 2021Q3

REPORT INFORMATION
  Report Type: Spontaneous
  Country: CH (occurrence: CH)
  Receive Date: 20180518
  Receipt Date: 20210817
  Transmission Date: 20211014
  Serious: No
  Sender: FDA-Public Use
  Company Number: CH-JAZZ-2018-CH-002133

PATIENT

DRUGS (2)
  1. XYREM [Suspect]
     Active Substance: SODIUM OXYBATE
     Indication: SOMNOLENCE
     Dosage: TITRATED DOSE BETWEEN 3 TO 9 G PER NIGHT
     Route: 048
  2. XYREM [Suspect]
     Active Substance: SODIUM OXYBATE
     Indication: PARKINSON^S DISEASE
     Dosage: FINAL DOSE OF MEAN MEDICATION WAS 4.8 G (1.5 G)
     Route: 048

REACTIONS (2)
  - Parasomnia [Not Recovered/Not Resolved]
  - Off label use [Unknown]
